FAERS Safety Report 8372526-X (Version None)
Quarter: 2012Q2

REPORT INFORMATION
  Report Type: 
  Country: None (occurrence: None)
  Receive Date: 20120521
  Receipt Date: 20120514
  Transmission Date: 20120825
  Serious: Yes (Hospitalization, Other)
  Sender: FDA-Public Use
  Company Number: PHHY2012JP029711

PATIENT
  Sex: Male

DRUGS (5)
  1. LEUPROLIDE ACETATE [Concomitant]
     Indication: PROSTATE CANCER
     Dosage: 3.75 MG
  2. DECADRON [Concomitant]
     Indication: PROSTATE CANCER
     Dosage: 3.3 MG
  3. ZOMETA [Suspect]
     Indication: METASTASES TO SPINE
     Dosage: 4 MG, PER ADMINISTRATION
     Route: 041
     Dates: start: 20080501, end: 20111020
  4. DOCETAXEL [Concomitant]
     Dosage: 20 MG
  5. ALOXI [Concomitant]
     Indication: PROSTATE CANCER
     Dosage: 0.75 MG

REACTIONS (5)
  - IMPAIRED HEALING [None]
  - FEMUR FRACTURE [None]
  - INJURY [None]
  - PAIN [None]
  - FALL [None]
